FAERS Safety Report 10062808 (Version 1)
Quarter: 2014Q2

REPORT INFORMATION
  Report Type: Spontaneous
  Country: US (occurrence: US)
  Receive Date: 20140407
  Receipt Date: 20140407
  Transmission Date: 20141212
  Serious: No
  Sender: FDA-Public Use
  Company Number: US-PFIZER INC-2014096507

PATIENT
  Age: 49 Year
  Sex: Male

DRUGS (1)
  1. EFFEXOR XR [Suspect]
     Dosage: 75 MG, DAILY

REACTIONS (2)
  - Wrong technique in drug usage process [Unknown]
  - Cardiac discomfort [Unknown]
